FAERS Safety Report 22847924 (Version 4)
Quarter: 2023Q4

REPORT INFORMATION
  Report Type: Report from Study
  Country: CN (occurrence: CN)
  Receive Date: 20230822
  Receipt Date: 20231120
  Transmission Date: 20240109
  Serious: Yes (Death, Hospitalization)
  Sender: FDA-Public Use
  Company Number: CN-GLAXOSMITHKLINE-CN2023GSK112342

PATIENT

DRUGS (4)
  1. NIRAPARIB [Suspect]
     Active Substance: NIRAPARIB
     Indication: Fallopian tube cancer stage III
     Dosage: 200 MG, QD
     Route: 048
     Dates: start: 20181030, end: 20211118
  2. AVATROMBOPAG [Concomitant]
     Active Substance: AVATROMBOPAG
     Indication: Platelet count decreased
  3. ELTROMBOPAG [Concomitant]
     Active Substance: ELTROMBOPAG
     Indication: Platelet count decreased
  4. PLATELETS [Concomitant]
     Active Substance: HUMAN PLATELET, ALLOGENIC
     Indication: Platelet count decreased

REACTIONS (2)
  - Pneumonia [Fatal]
  - Myelodysplastic syndrome [Not Recovered/Not Resolved]

NARRATIVE: CASE EVENT DATE: 20230122
